FAERS Safety Report 9976638 (Version 1)
Quarter: 2014Q1

REPORT INFORMATION
  Report Type: Report from Study
  Country: US (occurrence: US)
  Receive Date: 20140306
  Receipt Date: 20140306
  Transmission Date: 20141002
  Serious: No
  Sender: FDA-Public Use
  Company Number: US-ABBVIE-13P-163-1165731-00

PATIENT
  Sex: Female
  Weight: 89.89 kg

DRUGS (8)
  1. HUMIRA [Suspect]
     Indication: PSORIASIS
     Dates: start: 2011, end: 2011
  2. HUMIRA [Suspect]
     Dates: start: 2011, end: 2012
  3. HUMIRA [Suspect]
     Dates: start: 201309, end: 201309
  4. HUMIRA [Suspect]
     Dates: start: 2013
  5. REMICADE [Suspect]
     Indication: PSORIASIS
     Dates: start: 2013, end: 2013
  6. REMICADE [Suspect]
     Indication: PSORIASIS
  7. CRESTOR [Concomitant]
     Indication: BLOOD CHOLESTEROL INCREASED
     Dates: start: 201305, end: 201309
  8. CRESTOR [Concomitant]
     Dates: start: 201310

REACTIONS (10)
  - Skin exfoliation [Not Recovered/Not Resolved]
  - Psoriasis [Not Recovered/Not Resolved]
  - Blood cholesterol increased [Unknown]
  - Hypertension [Not Recovered/Not Resolved]
  - Skin fissures [Not Recovered/Not Resolved]
  - Haemorrhage [Not Recovered/Not Resolved]
  - Drug ineffective [Not Recovered/Not Resolved]
  - Psoriasis [Unknown]
  - Hypersensitivity [Unknown]
  - Koebner phenomenon [Not Recovered/Not Resolved]
